FAERS Safety Report 9637645 (Version 2)
Quarter: 2013Q4

REPORT INFORMATION
  Report Type: Spontaneous
  Country: US (occurrence: None)
  Receive Date: 20131018
  Receipt Date: 20131018
  Transmission Date: 20140711
  Serious: Yes (Death)
  Sender: FDA-Public Use
  Company Number: 2013AP008506

PATIENT
  Age: 50 Year
  Sex: Male

DRUGS (5)
  1. CLONAZEPAM TABLETS, USP [Suspect]
     Route: 048
  2. PAROXETINE [Suspect]
     Route: 048
  3. OMEPRAZOLE [Suspect]
     Route: 048
  4. QUETIAPINE FUMARATE [Suspect]
     Route: 048
  5. INDOMETACIN [Suspect]
     Route: 048

REACTIONS (3)
  - Medication error [None]
  - Completed suicide [None]
  - Drug abuse [None]
